FAERS Safety Report 11277461 (Version 2)
Quarter: 2015Q3

REPORT INFORMATION
  Report Type: Spontaneous
  Country: US (occurrence: US)
  Receive Date: 20150716
  Receipt Date: 20150807
  Transmission Date: 20151125
  Serious: No
  Sender: FDA-Public Use
  Company Number: US-GLAXOSMITHKLINE-US2015100842

PATIENT
  Age: 21 Year
  Sex: Female

DRUGS (2)
  1. ABREVA [Suspect]
     Active Substance: DOCOSANOL
     Indication: ORAL HERPES
     Dosage: UNK, BID, FOR FIRST FEW DAYS
     Dates: start: 20150703
  2. ABREVA [Suspect]
     Active Substance: DOCOSANOL
     Dosage: UNK, QID, , FOR REST OF DAYS FOR 10 DAYS PERIOD

REACTIONS (3)
  - Oral herpes [Not Recovered/Not Resolved]
  - Condition aggravated [Not Recovered/Not Resolved]
  - Drug administration error [Unknown]

NARRATIVE: CASE EVENT DATE: 20150703
